FAERS Safety Report 7493661-4 (Version None)
Quarter: 2011Q2

REPORT INFORMATION
  Report Type: 
  Country: None (occurrence: None)
  Receive Date: 20110520
  Receipt Date: 20110426
  Transmission Date: 20111010
  Serious: Yes (Hospitalization, Other)
  Sender: FDA-Public Use
  Company Number: US-BAYER-200938785NA

PATIENT
  Age: 25 Year
  Sex: Female
  Weight: 87.273 kg

DRUGS (5)
  1. SULFAMETHOXAZOLE [Concomitant]
     Dates: start: 20081124
  2. ADVIL LIQUI-GELS [Concomitant]
     Dates: start: 20070201
  3. PEPCID [Concomitant]
     Route: 048
     Dates: start: 20080701
  4. AMPICILLIN SODIUM [Concomitant]
     Route: 042
     Dates: start: 20080701
  5. YAZ [Suspect]
     Indication: ORAL CONTRACEPTION
     Route: 048
     Dates: start: 20080218, end: 20080518

REACTIONS (11)
  - CHOLELITHIASIS [None]
  - ABDOMINAL PAIN [None]
  - VOMITING [None]
  - BILE DUCT STONE [None]
  - HELICOBACTER INFECTION [None]
  - NAUSEA [None]
  - CHOLECYSTITIS ACUTE [None]
  - GALLBLADDER ENLARGEMENT [None]
  - ASCITES [None]
  - ABDOMINAL PAIN UPPER [None]
  - BILIARY COLIC [None]
